FAERS Safety Report 8232296-2 (Version None)
Quarter: 2012Q1

REPORT INFORMATION
  Report Type: 
  Country: None (occurrence: None)
  Receive Date: 20120323
  Receipt Date: 20120312
  Transmission Date: 20120608
  Serious: Yes (Other)
  Sender: FDA-Public Use
  Company Number: US-ELI_LILLY_AND_COMPANY-US201202004627

PATIENT
  Sex: Male
  Weight: 175 kg

DRUGS (1)
  1. CIALIS [Suspect]
     Indication: ERECTILE DYSFUNCTION
     Dosage: 20 MG, PRN
     Route: 048
     Dates: start: 20090101

REACTIONS (4)
  - HODGKIN'S DISEASE [None]
  - NON-HODGKIN'S LYMPHOMA [None]
  - DRUG INEFFECTIVE [None]
  - MYALGIA [None]
